FAERS Safety Report 4468538-9 (Version None)
Quarter: 2004Q4

REPORT INFORMATION
  Report Type: 
  Country: None (occurrence: None)
  Receive Date: 20041007
  Receipt Date: 20040915
  Transmission Date: 20050328
  Serious: No
  Sender: FDA-Public Use
  Company Number: PHBS2004JP12352

PATIENT
  Age: 33 Year
  Sex: Female

DRUGS (6)
  1. NEORAL [Suspect]
     Indication: RENAL TRANSPLANT
     Dosage: 350 MG/D
     Route: 048
  2. RENAGEL [Suspect]
     Dosage: UNK, UNK
     Route: 065
  3. SIMULECT [Concomitant]
     Indication: RENAL TRANSPLANT
  4. PREDNISOLONE [Concomitant]
     Indication: RENAL TRANSPLANT
  5. MYCOPHENOLATE MOFETIL [Concomitant]
  6. CYCLOSPORINE [Concomitant]
     Indication: RENAL TRANSPLANT
     Dosage: 1.7 MG/KG, BID

REACTIONS (3)
  - DRUG INTERACTION [None]
  - DRUG LEVEL BELOW THERAPEUTIC [None]
  - MALABSORPTION [None]
